FAERS Safety Report 6742979-9 (Version None)
Quarter: 2010Q2

REPORT INFORMATION
  Report Type: 
  Country: None (occurrence: None)
  Receive Date: 20100527
  Receipt Date: 20100518
  Transmission Date: 20101027
  Serious: No
  Sender: FDA-Public Use
  Company Number: US-BIOGENIDEC-2010BI016807

PATIENT
  Age: 52 Year
  Sex: Female

DRUGS (4)
  1. TYSABRI [Suspect]
     Indication: MULTIPLE SCLEROSIS
     Route: 042
     Dates: start: 20061024, end: 20090507
  2. TYSABRI [Suspect]
     Route: 042
     Dates: start: 20090215
  3. AVONEX [Concomitant]
     Indication: MULTIPLE SCLEROSIS
     Route: 030
     Dates: end: 20061004
  4. AVONEX [Concomitant]
     Route: 030
     Dates: start: 20090708

REACTIONS (2)
  - ASTHENIA [None]
  - SLUGGISHNESS [None]
